FAERS Safety Report 16416030 (Version 2)
Quarter: 2019Q3

REPORT INFORMATION
  Report Type: Spontaneous
  Country: JP (occurrence: JP)
  Receive Date: 20190611
  Receipt Date: 20190919
  Transmission Date: 20191004
  Serious: Yes (Hospitalization)
  Sender: FDA-Public Use
  Company Number: JP-JNJFOC-20190612672

PATIENT
  Age: 87 Year
  Sex: Male
  Weight: 54.7 kg

DRUGS (12)
  1. LIXIANA [Suspect]
     Active Substance: EDOXABAN TOSYLATE
     Indication: HAEMORRHAGIC INFARCTION
     Route: 048
     Dates: start: 20190523, end: 20190525
  2. RIVAROXABAN [Suspect]
     Active Substance: RIVAROXABAN
     Indication: THROMBOSIS PROPHYLAXIS
  3. RIVAROXABAN [Suspect]
     Active Substance: RIVAROXABAN
     Indication: EMBOLIC STROKE
     Route: 048
     Dates: start: 20190514, end: 20190522
  4. TRICHLORMETHIAZIDE [Concomitant]
     Active Substance: TRICHLORMETHIAZIDE
     Route: 048
  5. AZILVA [Concomitant]
     Active Substance: AZILSARTAN KAMEDOXOMIL
     Route: 048
     Dates: start: 20190516
  6. APO LANSOPRAZOLE ODT [Concomitant]
     Route: 048
  7. AVOLVE [Concomitant]
     Active Substance: DUTASTERIDE
     Route: 048
  8. MAGMITT [Concomitant]
     Active Substance: MAGNESIUM OXIDE
     Route: 048
     Dates: start: 20190508, end: 20190521
  9. LIXIANA [Suspect]
     Active Substance: EDOXABAN TOSYLATE
     Indication: THROMBOSIS PROPHYLAXIS
     Route: 048
     Dates: start: 20190530
  10. TENORMIN [Concomitant]
     Active Substance: ATENOLOL
     Route: 048
  11. AMLODIPINE BESILATE [Concomitant]
     Active Substance: AMLODIPINE BESYLATE
     Route: 048
  12. SILODOSIN. [Concomitant]
     Active Substance: SILODOSIN
     Route: 048
     Dates: start: 20190506

REACTIONS (2)
  - Haemorrhagic cerebral infarction [Recovered/Resolved with Sequelae]
  - Incorrect route of product administration [Unknown]

NARRATIVE: CASE EVENT DATE: 20190514
